FAERS Safety Report 21988732 (Version 2)
Quarter: 2023Q2

REPORT INFORMATION
  Report Type: Report from Study
  Country: CA (occurrence: CA)
  Receive Date: 20230214
  Receipt Date: 20230418
  Transmission Date: 20230722
  Serious: Yes (Death, Other)
  Sender: FDA-Public Use
  Company Number: CA-JNJFOC-20230216865

PATIENT
  Age: 77 Year
  Sex: Female
  Weight: 65 kg

DRUGS (1)
  1. SIMPONI [Suspect]
     Active Substance: GOLIMUMAB
     Indication: Rheumatoid arthritis
     Route: 041
     Dates: start: 20211014, end: 20221212

REACTIONS (2)
  - Overdose [Fatal]
  - Neoplasm malignant [Not Recovered/Not Resolved]
